FAERS Safety Report 9923264 (Version 1)
Quarter: 2014Q1

REPORT INFORMATION
  Report Type: Spontaneous
  Country: US (occurrence: US)
  Receive Date: 20140225
  Receipt Date: 20140225
  Transmission Date: 20141002
  Serious: No
  Sender: FDA-Public Use
  Company Number: US-AMGEN-USASP2013072769

PATIENT
  Age: 50 Year
  Sex: Female
  Weight: 81.63 kg

DRUGS (10)
  1. ENBREL [Suspect]
     Indication: PRODUCT USED FOR UNKNOWN INDICATION
     Dosage: 50 MG, QWK
     Route: 058
  2. LIPITOR [Concomitant]
     Dosage: 10 MG, UNK
  3. OXYCODON [Concomitant]
     Dosage: 5 MG, UNK
  4. ACTIVELLA [Concomitant]
     Dosage: 1-0.5 MG
  5. PREDNISONE [Concomitant]
     Dosage: 20 MG, UNK
  6. PROZAC [Concomitant]
     Dosage: 10 MG, UNK
  7. XANAX [Concomitant]
     Dosage: 0.5 MG, UNK
  8. FLEXERIL                           /00428402/ [Concomitant]
     Dosage: 10 MG, UNK
  9. SUMATRIPTAN [Concomitant]
     Dosage: 6 MG/0.5
  10. AMBIEN [Concomitant]
     Dosage: 10 MG, UNK

REACTIONS (1)
  - Injection site pain [Unknown]
